FAERS Safety Report 6613699-6 (Version None)
Quarter: 2010Q1

REPORT INFORMATION
  Report Type: 
  Country: None (occurrence: None)
  Receive Date: 20100225
  Receipt Date: 20090226
  Transmission Date: 20100710
  Serious: Yes (Other)
  Sender: FDA-Public Use
  Company Number: 618655

PATIENT
  Sex: Male

DRUGS (1)
  1. ACCUTANE [Suspect]
     Indication: DRUG USE FOR UNKNOWN INDICATION
     Dosage: 80 MG DAILY
     Dates: start: 20070101

REACTIONS (5)
  - ARTHRALGIA [None]
  - BLEPHARITIS [None]
  - INFLAMMATORY BOWEL DISEASE [None]
  - KERATITIS [None]
  - SEXUAL DYSFUNCTION [None]
